FAERS Safety Report 7389190-9 (Version None)
Quarter: 2011Q1

REPORT INFORMATION
  Report Type: 
  Country: None (occurrence: None)
  Receive Date: 20110329
  Receipt Date: 20110329
  Transmission Date: 20110831
  Serious: No
  Sender: FDA-Public Use
  Company Number: None

PATIENT
  Sex: Female
  Weight: 90.7194 kg

DRUGS (1)
  1. PROPOXYPHENE HCL AND ACETAMINOPHEN [Suspect]
     Indication: PAIN
     Dosage: 1 OR 2 MOUTH 6 TO 8 HOURS
     Route: 048

REACTIONS (6)
  - EYE SWELLING [None]
  - DYSPNOEA [None]
  - VISION BLURRED [None]
  - HEADACHE [None]
  - CHEST PAIN [None]
  - EYE PAIN [None]
